FAERS Safety Report 8063958-8 (Version None)
Quarter: 2012Q1

REPORT INFORMATION
  Report Type: 
  Country: None (occurrence: None)
  Receive Date: 20120123
  Receipt Date: 20120112
  Transmission Date: 20120608
  Serious: Yes (Hospitalization, Other)
  Sender: FDA-Public Use
  Company Number: PHHY2010GB01810

PATIENT
  Sex: Female

DRUGS (19)
  1. CANDESARTAN CILEXETIL [Concomitant]
     Dosage: 4 MG, OD
     Route: 048
     Dates: start: 20110801
  2. LORAZEPAM [Concomitant]
     Dosage: 1 MG, AT 1200 AND 1800
     Route: 048
     Dates: start: 20111003
  3. AMLODIPINE [Concomitant]
     Indication: HYPERTENSION
     Dosage: 5 MG, UNK
     Route: 048
     Dates: start: 20110801
  4. DOCUSATE SODIUM [Concomitant]
     Dosage: 200 MG, BD
     Route: 048
     Dates: start: 20110801
  5. CLOZARIL [Suspect]
     Dosage: 300 MG, QD
     Dates: start: 20090206, end: 20100101
  6. PROCYCLIDINE HYDROCHLORIDE 2MG TAB [Concomitant]
     Dosage: 5 MG, PRN
     Route: 048
     Dates: start: 20111013
  7. TRAMADOL HCL [Concomitant]
     Dosage: 50 MG, PRN
     Route: 048
     Dates: start: 20110929
  8. CLOZARIL [Suspect]
     Indication: SCHIZOPHRENIA
     Dosage: 450 MG, QD
     Dates: start: 20090101
  9. TRIMETHOPRIM [Concomitant]
     Dosage: 100 MG, NOCTE
     Route: 048
     Dates: start: 20110801
  10. CAPZASIN CREAM [Concomitant]
     Dosage: 1 APPLICATION TDS
     Route: 061
     Dates: start: 20110801
  11. PROCYCLIDINE HYDROCHLORIDE 2MG TAB [Concomitant]
     Dosage: 5 MG, TDS
     Route: 048
     Dates: start: 20110801
  12. SIMVASTATIN [Concomitant]
     Dosage: 40 MG, NOCTE
     Route: 048
     Dates: start: 20110801
  13. BENDROFLUMETHIAZIDE [Concomitant]
     Dosage: 2.5 MG, OD
     Route: 048
     Dates: start: 20110801
  14. OMEPRAZOLE [Concomitant]
  15. ACETAMINOPHEN [Concomitant]
     Dosage: 1 G, QDS
     Route: 048
     Dates: start: 20110801
  16. LORAZEPAM [Concomitant]
     Dosage: 2 MG, AT 0800 AND 2200
     Route: 048
     Dates: start: 20111004
  17. LORAZEPAM [Concomitant]
     Dosage: 1 MG, PRN
     Route: 048
     Dates: start: 20111003
  18. ZOPICLONE [Concomitant]
     Dosage: 7.5 MG, NOCTE
     Route: 048
     Dates: start: 20111208
  19. FERROUS SULFATE TAB [Concomitant]
     Dosage: 200 MG, BD
     Route: 048
     Dates: start: 20110801

REACTIONS (14)
  - SLEEP DISORDER [None]
  - RENAL ATROPHY [None]
  - RENAL FAILURE CHRONIC [None]
  - RENAL IMPAIRMENT [None]
  - URINARY TRACT INFECTION [None]
  - GLOMERULAR FILTRATION RATE DECREASED [None]
  - BLOOD CREATININE INCREASED [None]
  - NEPHROLITHIASIS [None]
  - TARDIVE DYSKINESIA [None]
  - OBESITY [None]
  - EXTRAPYRAMIDAL DISORDER [None]
  - MENTAL DISORDER [None]
  - PSYCHOTIC DISORDER [None]
  - ANTIPSYCHOTIC DRUG LEVEL ABOVE THERAPEUTIC [None]
